FAERS Safety Report 7384940-X (Version None)
Quarter: 2011Q1

REPORT INFORMATION
  Report Type: 
  Country: None (occurrence: None)
  Receive Date: 20110322
  Receipt Date: 20110307
  Transmission Date: 20110831
  Serious: Yes (Other)
  Sender: FDA-Public Use
  Company Number: AUR-APL-2011-00992

PATIENT
  Age: 50 Year
  Sex: Male

DRUGS (1)
  1. METFORMIN HCL [Suspect]

REACTIONS (3)
  - LATENT AUTOIMMUNE DIABETES IN ADULTS [None]
  - FEELING ABNORMAL [None]
  - ASTHENIA [None]
